FAERS Safety Report 18784703 (Version 1)
Quarter: 2021Q1

REPORT INFORMATION
  Report Type: Report from Study
  Country: FR (occurrence: FR)
  Receive Date: 20210125
  Receipt Date: 20210125
  Transmission Date: 20210419
  Serious: Yes (Hospitalization, Other)
  Sender: FDA-Public Use
  Company Number: FR-OTSUKA-2021_001611

PATIENT
  Age: 56 Year
  Sex: Female

DRUGS (3)
  1. NO DRUG [Suspect]
     Active Substance: UNSPECIFIED INGREDIENT
     Indication: SCHIZOPHRENIA
     Route: 065
  2. ABILIFY MAINTENA [Suspect]
     Active Substance: ARIPIPRAZOLE
     Indication: SCHIZOPHRENIA
     Dosage: 300 MG, UNK
     Route: 065
  3. ABILIFY [Suspect]
     Active Substance: ARIPIPRAZOLE
     Indication: SCHIZOPHRENIA
     Dosage: UNK (FOR 15 YEARS)
     Route: 048

REACTIONS (10)
  - Mania [Unknown]
  - Delirium [Unknown]
  - Treatment noncompliance [Unknown]
  - Paranoia [Not Recovered/Not Resolved]
  - Delusion [Unknown]
  - Hallucination [Not Recovered/Not Resolved]
  - Psychomotor hyperactivity [Unknown]
  - Persecutory delusion [Not Recovered/Not Resolved]
  - Depression [Not Recovered/Not Resolved]
  - Therapy cessation [Unknown]
